FAERS Safety Report 14846591 (Version 1)
Quarter: 2018Q2

REPORT INFORMATION
  Report Type: Report from Study
  Country: DE (occurrence: DE)
  Receive Date: 20180504
  Receipt Date: 20180504
  Transmission Date: 20180711
  Serious: Yes (Death)
  Sender: FDA-Public Use
  Company Number: DE-ROCHE-2109249

PATIENT
  Age: 73 Year
  Sex: Female
  Weight: 69 kg

DRUGS (2)
  1. PACLITAXEL. [Concomitant]
     Active Substance: PACLITAXEL
     Indication: BREAST CANCER
     Dosage: RECEIVED SUBSEQUENT DOSES OF PACLITAXEL ON 12/SEP/2011,20/SEP/2011,27/SEP/2011, 17/OCT/2011,24/OCT/2
     Route: 065
     Dates: start: 20110912
  2. BEVACIZUMAB. [Suspect]
     Active Substance: BEVACIZUMAB
     Indication: BREAST CANCER
     Dosage: MOST RECENT DOSE PRIOR TO EVENT 05/DEC/2011
     Route: 065
     Dates: start: 20110912

REACTIONS (1)
  - Cerebrovascular accident [Fatal]

NARRATIVE: CASE EVENT DATE: 20111214
